FAERS Safety Report 13183975 (Version 1)
Quarter: 2017Q1

REPORT INFORMATION
  Report Type: Spontaneous
  Country: US (occurrence: US)
  Receive Date: 20170203
  Receipt Date: 20170203
  Transmission Date: 20170428
  Serious: Yes (Hospitalization, Other)
  Sender: FDA-Public Use
  Company Number: US-BRISTOL-MYERS SQUIBB COMPANY-BMS-2017-004567

PATIENT
  Age: 72 Year
  Sex: Male
  Weight: 77.2 kg

DRUGS (11)
  1. ABEMACICLIB [Suspect]
     Active Substance: ABEMACICLIB
     Indication: PANCREATIC CARCINOMA
     Dosage: 200 MG, Q12H
     Route: 048
     Dates: start: 20161122, end: 20161208
  2. MIDAZOLAM [Suspect]
     Active Substance: MIDAZOLAM HYDROCHLORIDE
     Indication: PRODUCT USED FOR UNKNOWN INDICATION
     Dosage: 0.2 MG, UNK
     Route: 048
     Dates: start: 20161129, end: 20161129
  3. CAFFEINE. [Suspect]
     Active Substance: CAFFEINE
     Indication: PRODUCT USED FOR UNKNOWN INDICATION
     Dosage: 100 MG, UNK
     Route: 048
     Dates: start: 20161129, end: 20161129
  4. DEXTROMETHORPHAN [Suspect]
     Active Substance: DEXTROMETHORPHAN
     Indication: PANCREATIC CARCINOMA
     Dosage: 30 MG, UNK
     Route: 048
     Dates: start: 20161108, end: 20161108
  5. WARFARIN SODIUM. [Suspect]
     Active Substance: WARFARIN SODIUM
     Indication: PANCREATIC CARCINOMA
     Dosage: 10 MG, UNK
     Route: 048
     Dates: start: 20161108, end: 20161108
  6. CAFFEINE. [Suspect]
     Active Substance: CAFFEINE
     Indication: PANCREATIC CARCINOMA
     Dosage: 100 MG, UNK
     Route: 048
     Dates: start: 20161108, end: 20161108
  7. WARFARIN SODIUM. [Suspect]
     Active Substance: WARFARIN SODIUM
     Indication: PRODUCT USED FOR UNKNOWN INDICATION
     Dosage: 10 MG, UNK
     Route: 048
     Dates: start: 20161129, end: 20161129
  8. MIDAZOLAM [Suspect]
     Active Substance: MIDAZOLAM HYDROCHLORIDE
     Indication: PRODUCT USED FOR UNKNOWN INDICATION
     Dosage: 0.2 MG, UNK
     Route: 048
     Dates: start: 20161214
  9. ABEMACICLIB [Suspect]
     Active Substance: ABEMACICLIB
     Indication: PRODUCT USED FOR UNKNOWN INDICATION
     Dosage: 200 MG, Q12H
     Route: 048
     Dates: start: 20161214, end: 20161225
  10. MIDAZOLAM [Suspect]
     Active Substance: MIDAZOLAM HYDROCHLORIDE
     Indication: PANCREATIC CARCINOMA
     Dosage: 0.2 MG, UNK
     Route: 048
     Dates: start: 20161108, end: 20161108
  11. DEXTROMETHORPHAN [Suspect]
     Active Substance: DEXTROMETHORPHAN
     Indication: PRODUCT USED FOR UNKNOWN INDICATION
     Dosage: 30 MG, UNK
     Route: 048
     Dates: start: 20161129, end: 20161129

REACTIONS (11)
  - Dehydration [Unknown]
  - Product use issue [Unknown]
  - Asthenia [Unknown]
  - Vomiting [Unknown]
  - Embolism [Recovered/Resolved]
  - Fatigue [Unknown]
  - Disorientation [Unknown]
  - Head injury [Unknown]
  - Fall [Unknown]
  - Cytotoxic oedema [Unknown]
  - Transient ischaemic attack [Unknown]

NARRATIVE: CASE EVENT DATE: 20161207
